FAERS Safety Report 8431548-0 (Version None)
Quarter: 2012Q2

REPORT INFORMATION
  Report Type: 
  Country: None (occurrence: None)
  Receive Date: 20120607
  Receipt Date: 20120607
  Transmission Date: 20120825
  Serious: Yes (Other)
  Sender: FDA-Public Use
  Company Number: None

PATIENT
  Sex: Male

DRUGS (1)
  1. AZITHROMYCIN [Suspect]
     Indication: BRONCHITIS
     Dosage: 2 TABLET 1ST DAY 1 TABLET AFTER DATE  EACH DAY FOR 5 DAYS
     Dates: start: 20120208, end: 20120212

REACTIONS (8)
  - WEIGHT DECREASED [None]
  - FATIGUE [None]
  - DECREASED APPETITE [None]
  - DIZZINESS [None]
  - HEADACHE [None]
  - DYSPNOEA [None]
  - HEARING IMPAIRED [None]
  - NAUSEA [None]
